FAERS Safety Report 5706751-0 (Version None)
Quarter: 2008Q2

REPORT INFORMATION
  Report Type: 
  Country: None (occurrence: None)
  Receive Date: 20080414
  Receipt Date: 20080414
  Transmission Date: 20081010
  Serious: Yes (Hospitalization)
  Sender: FDA-Public Use
  Company Number: None

PATIENT
  Sex: Male
  Weight: 83.7 kg

DRUGS (3)
  1. CISPLATIN [Suspect]
     Dosage: 40 MG
  2. ETOPOSIDE [Suspect]
     Dosage: 200 MG
  3. CAMPTOSAR [Suspect]
     Dosage: 100 MG

REACTIONS (15)
  - ASTHENIA [None]
  - CHEST X-RAY ABNORMAL [None]
  - DIARRHOEA [None]
  - FALL [None]
  - FLUID INTAKE REDUCED [None]
  - HEART RATE INCREASED [None]
  - ILEUS [None]
  - NAUSEA [None]
  - NERVOUSNESS [None]
  - NEUTROPENIA [None]
  - ORAL INTAKE REDUCED [None]
  - PALLOR [None]
  - PULMONARY EMBOLISM [None]
  - PULMONARY MASS [None]
  - WEIGHT DECREASED [None]
